FAERS Safety Report 21854650 (Version 1)
Quarter: 2023Q1

REPORT INFORMATION
  Report Type: Spontaneous
  Country: US (occurrence: None)
  Receive Date: 20230112
  Receipt Date: 20230112
  Transmission Date: 20230417
  Serious: No
  Sender: FDA-Public Use
  Company Number: None

PATIENT
  Age: 67 Year
  Sex: Female
  Weight: 60.42 kg

DRUGS (14)
  1. KISQALI [Suspect]
     Active Substance: RIBOCICLIB
     Indication: Bone cancer
     Dosage: FREQUENCY : MONTHLY;?
     Route: 048
     Dates: start: 202110
  2. ASPIRIN EC LOW [Concomitant]
  3. ATIVAN [Concomitant]
     Active Substance: LORAZEPAM
  4. ATORVASTATIN [Concomitant]
     Active Substance: ATORVASTATIN
  5. AZELASTINE [Suspect]
     Active Substance: AZELASTINE
  6. CALCIUM CITRATE [Concomitant]
     Active Substance: CALCIUM CITRATE
  7. FASLODEX [Concomitant]
     Active Substance: FULVESTRANT
  8. FISH OIL [Concomitant]
     Active Substance: FISH OIL
  9. FLONASE, [Concomitant]
  10. LEXAPRO [Concomitant]
     Active Substance: ESCITALOPRAM OXALATE
  11. METOPROLOL [Concomitant]
     Active Substance: METOPROLOL
  12. SULFAMETHOXAZOLE\TRIMETHOPRIM [Concomitant]
     Active Substance: SULFAMETHOXAZOLE\TRIMETHOPRIM
  13. VITAMIN D [Concomitant]
     Active Substance: VITAMIN D NOS
  14. XGEVA [Concomitant]
     Active Substance: DENOSUMAB

REACTIONS (2)
  - Disease progression [None]
  - Metastasis [None]
